FAERS Safety Report 6974712-X (Version None)
Quarter: 2010Q3

REPORT INFORMATION
  Report Type: 
  Country: None (occurrence: None)
  Receive Date: 20100909
  Receipt Date: 20081223
  Transmission Date: 20110219
  Serious: No
  Sender: FDA-Public Use
  Company Number: US-WYE-H06783208

PATIENT
  Sex: Female

DRUGS (4)
  1. PRISTIQ [Suspect]
     Indication: ANXIETY
     Route: 048
     Dates: start: 20081106, end: 20081221
  2. WELLBUTRIN [Concomitant]
  3. LORAZEPAM [Concomitant]
  4. BENICAR [Concomitant]

REACTIONS (6)
  - ABDOMINAL DISCOMFORT [None]
  - ANXIETY [None]
  - CONDITION AGGRAVATED [None]
  - HEADACHE [None]
  - NAUSEA [None]
  - SOMNOLENCE [None]
